FAERS Safety Report 15435245 (Version 1)
Quarter: 2018Q3

REPORT INFORMATION
  Report Type: Spontaneous
  Country: US (occurrence: US)
  Receive Date: 20180927
  Receipt Date: 20180927
  Transmission Date: 20181010
  Serious: No
  Sender: FDA-Public Use
  Company Number: US-TEVA-2018-US-958414

PATIENT
  Sex: Female

DRUGS (2)
  1. TORASEMIDE [Suspect]
     Active Substance: TORSEMIDE
     Indication: FLUID RETENTION
     Dosage: 10 MILLIGRAM DAILY;
  2. TORASEMIDE [Suspect]
     Active Substance: TORSEMIDE
     Dates: start: 201805

REACTIONS (1)
  - Drug ineffective [Unknown]
